FAERS Safety Report 14506555 (Version 6)
Quarter: 2019Q1

REPORT INFORMATION
  Report Type: Spontaneous
  Country: US (occurrence: US)
  Receive Date: 20180208
  Receipt Date: 20190325
  Transmission Date: 20190417
  Serious: No
  Sender: FDA-Public Use
  Company Number: US-BRISTOL-MYERS SQUIBB COMPANY-BMS-2018-012129

PATIENT
  Sex: Female

DRUGS (1)
  1. ORENCIA [Suspect]
     Active Substance: ABATACEPT
     Indication: RHEUMATOID ARTHRITIS
     Dosage: 125 MG, QWK
     Route: 058
     Dates: start: 201706

REACTIONS (10)
  - Rash [Unknown]
  - Pain of skin [Unknown]
  - Product dose omission [Unknown]
  - Bronchitis [Unknown]
  - Arthralgia [Unknown]
  - Feeling hot [Unknown]
  - Erythema [Unknown]
  - Back disorder [Unknown]
  - Malaise [Unknown]
  - Drug ineffective [Unknown]
